FAERS Safety Report 5782895-2 (Version None)
Quarter: 2008Q2

REPORT INFORMATION
  Report Type: 
  Country: None (occurrence: None)
  Receive Date: 20080624
  Receipt Date: 20080616
  Transmission Date: 20081010
  Serious: Yes (Other)
  Sender: FDA-Public Use
  Company Number: IE-JNJFOC-20080203759

PATIENT
  Age: 21 Year
  Sex: Female

DRUGS (2)
  1. TOPAMAX [Suspect]
     Indication: EPILEPSY
     Route: 048
  2. LAMICTAL [Concomitant]
     Indication: EPILEPSY
     Route: 065

REACTIONS (2)
  - DEREALISATION [None]
  - HALLUCINATION, VISUAL [None]
